FAERS Safety Report 20447511 (Version 1)
Quarter: 2022Q1

REPORT INFORMATION
  Report Type: Report from Study
  Country: US (occurrence: US)
  Receive Date: 20220209
  Receipt Date: 20220209
  Transmission Date: 20220423
  Serious: No
  Sender: FDA-Public Use
  Company Number: US-HRARD-2021000076

PATIENT
  Age: 43 Year
  Sex: Male

DRUGS (3)
  1. LYSODREN [Suspect]
     Active Substance: MITOTANE
     Dosage: 2000 MG (04 TABS) IN THE MORNING AND 1500 (03 TABS) MG IN THE EVENING
     Dates: start: 20191223, end: 20210226
  2. LYSODREN [Suspect]
     Active Substance: MITOTANE
     Dosage: 2000 MG (04 TABS) IN THE MORNING AND 1500 (03 TABS) MG IN THE EVENING
     Dates: start: 2021, end: 202109
  3. LYSODREN [Suspect]
     Active Substance: MITOTANE
     Dosage: 02 TABLETS TWICE DAILY
     Dates: start: 202109

REACTIONS (4)
  - Skin lesion [Not Recovered/Not Resolved]
  - Vomiting [Not Recovered/Not Resolved]
  - Nausea [Not Recovered/Not Resolved]
  - Diarrhoea [Unknown]

NARRATIVE: CASE EVENT DATE: 20191230
